FAERS Safety Report 18433591 (Version 1)
Quarter: 2020Q4

REPORT INFORMATION
  Report Type: Spontaneous
  Country: FR (occurrence: FR)
  Receive Date: 20201027
  Receipt Date: 20201027
  Transmission Date: 20210114
  Serious: Yes (Hospitalization)
  Sender: FDA-Public Use
  Company Number: 20090313 FU2

PATIENT
  Sex: Female
  Weight: 61 kg

DRUGS (8)
  1. VENOFER [Suspect]
     Active Substance: IRON SUCROSE
     Indication: IRON DEFICIENCY ANAEMIA
     Dosage: 600 MILLIGRAM
     Route: 042
     Dates: start: 20090630, end: 20090702
  2. LOVENOX [Concomitant]
     Active Substance: ENOXAPARIN SODIUM
     Dosage: 8000 IU (4000 IU, 2 IN 1 D)
     Route: 065
     Dates: start: 20090707, end: 20090707
  3. NIFLURIL                           /00224001/ [Concomitant]
     Active Substance: NIFLUMIC ACID
     Indication: BREAST ENGORGEMENT
     Dosage: UNK
     Route: 048
     Dates: start: 20090702, end: 20090705
  4. LOVENOX [Concomitant]
     Active Substance: ENOXAPARIN SODIUM
     Indication: PRODUCT USED FOR UNKNOWN INDICATION
     Dosage: 4000 IU (4000 IU, 1 IN 1 D)
     Route: 058
     Dates: start: 20090702, end: 20090705
  5. SUFENTA [Concomitant]
     Active Substance: SUFENTANIL CITRATE
     Indication: PRODUCT USED FOR UNKNOWN INDICATION
     Dosage: 20 MCG (20 MCG)
     Dates: start: 20090630
  6. NAROPEINE [Concomitant]
     Active Substance: ROPIVACAINE HYDROCHLORIDE
     Indication: EPIDURAL ANALGESIA
     Dosage: UNK
     Route: 065
     Dates: start: 20090630, end: 20090630
  7. DAFALGAN [Concomitant]
     Active Substance: ACETAMINOPHEN
     Indication: PRODUCT USED FOR UNKNOWN INDICATION
     Dosage: 6 DOSAGE FORMS (2 DOSAGE FORMS, 3 IN 1 D)
     Route: 048
     Dates: start: 20090702, end: 20090702
  8. DAFALGAN [Concomitant]
     Active Substance: ACETAMINOPHEN
     Dosage: 6 DOSAGE FORMS (2 DOSAGE FORMS, 3 IN 1 D)
     Route: 048
     Dates: start: 20090705, end: 20090705

REACTIONS (2)
  - Phlebitis superficial [Recovered/Resolved]
  - Injection site induration [Recovered/Resolved]

NARRATIVE: CASE EVENT DATE: 20090705
